FAERS Safety Report 12290571 (Version 1)
Quarter: 2016Q2

REPORT INFORMATION
  Report Type: Report from Study
  Country: US (occurrence: US)
  Receive Date: 20160421
  Receipt Date: 20160421
  Transmission Date: 20160815
  Serious: Yes (Hospitalization)
  Sender: FDA-Public Use
  Company Number: US-ACTELION-A-US2016-134754

PATIENT
  Age: 79 Year
  Sex: Female

DRUGS (2)
  1. PENTAZOCINE AND NALOXONE [Concomitant]
     Active Substance: NALOXONE HYDROCHLORIDE\PENTAZOCINE HYDROCHLORIDE
  2. MACITENTAN [Suspect]
     Active Substance: MACITENTAN
     Indication: PULMONARY ARTERIAL HYPERTENSION
     Dosage: 10 MG, QD
     Route: 048
     Dates: start: 20160128

REACTIONS (1)
  - Pneumonia [Unknown]
